FAERS Safety Report 14789765 (Version 2)
Quarter: 2018Q2

REPORT INFORMATION
  Report Type: Spontaneous
  Country: US (occurrence: US)
  Receive Date: 20180423
  Receipt Date: 20180516
  Transmission Date: 20180711
  Serious: No
  Sender: FDA-Public Use
  Company Number: US-PFIZER INC-2018158696

PATIENT
  Sex: Female

DRUGS (1)
  1. ADVIL [Suspect]
     Active Substance: IBUPROFEN
     Dosage: UNK, 1X/DAY (3 AT A TIME)

REACTIONS (3)
  - Incorrect dose administered [Unknown]
  - Incorrect drug administration duration [Unknown]
  - Hypertension [Unknown]
